FAERS Safety Report 5375314-1 (Version None)
Quarter: 2007Q2

REPORT INFORMATION
  Report Type: 
  Country: None (occurrence: None)
  Receive Date: 20070629
  Receipt Date: 20070622
  Transmission Date: 20071010
  Serious: Yes (Other)
  Sender: FDA-Public Use
  Company Number: US-PFIZER INC-2007052153

PATIENT
  Sex: Female
  Weight: 22 kg

DRUGS (2)
  1. GENOTROPIN [Suspect]
     Indication: HYPOPITUITARISM
     Route: 058
     Dates: start: 20030328, end: 20070501
  2. LEVOTHROID [Concomitant]

REACTIONS (4)
  - ARTHRALGIA [None]
  - OSTEOCHONDROSIS [None]
  - OSTEONECROSIS [None]
  - PAIN IN EXTREMITY [None]
